FAERS Safety Report 8963658 (Version 2)
Quarter: 2012Q4

REPORT INFORMATION
  Report Type: 
  Country: JP (occurrence: JP)
  Receive Date: 20121214
  Receipt Date: 20121231
  Transmission Date: 20130627
  Serious: Yes (Life-Threatening, Hospitalization)
  Sender: FDA-Public Use
  Company Number: JP-BAYER-2012-130469

PATIENT
  Age: 35 Year
  Sex: Female
  Weight: 43 kg

DRUGS (6)
  1. YAZ [Suspect]
     Indication: DYSMENORRHEA
     Dosage: 1 DF, QD
     Route: 048
     Dates: start: 20121124, end: 20121207
  2. YAZ [Suspect]
     Indication: ENDOMETRIOSIS
  3. LOXONIN [Suspect]
     Dosage: UNK
     Dates: start: 201210
  4. ASPIRIN [Suspect]
     Dosage: UNK
     Dates: start: 201211
  5. SOLANAX [Suspect]
     Dosage: UNK
     Route: 048
  6. AMINO-9 [Concomitant]
     Dosage: UNK
     Route: 048

REACTIONS (7)
  - Stevens-Johnson syndrome [Recovering/Resolving]
  - Malaise [Recovering/Resolving]
  - Pyrexia [Recovering/Resolving]
  - Headache [Recovering/Resolving]
  - Oral mucosa erosion [Recovering/Resolving]
  - Lip swelling [Recovering/Resolving]
  - Generalised erythema [Recovering/Resolving]
